FAERS Safety Report 6077687-3 (Version None)
Quarter: 2009Q1

REPORT INFORMATION
  Report Type: 
  Country: None (occurrence: None)
  Receive Date: 20090213
  Receipt Date: 20090202
  Transmission Date: 20090719
  Serious: Yes (Other)
  Sender: FDA-Public Use
  Company Number: DE-ROCHE-613532

PATIENT
  Sex: Female

DRUGS (2)
  1. SAQUINAVIR [Suspect]
     Route: 065
  2. RITONAVIR [Suspect]
     Route: 065

REACTIONS (1)
  - KAPOSI'S SARCOMA [None]
